FAERS Safety Report 6042429-4 (Version None)
Quarter: 2009Q1

REPORT INFORMATION
  Report Type: 
  Country: None (occurrence: None)
  Receive Date: 20090116
  Receipt Date: 20090113
  Transmission Date: 20090719
  Serious: Yes (Hospitalization, Other)
  Sender: FDA-Public Use
  Company Number: JP-B.I. PHARMACEUTICALS,INC./RIDGEFIELD-2008-DE-05096GD

PATIENT
  Age: 58 Year
  Sex: Female

DRUGS (12)
  1. PRAMIPEXOLE DIHYDROCHLORIDE [Suspect]
     Indication: MULTIPLE SYSTEM ATROPHY
     Dosage: 1.5MG
  2. PRAMIPEXOLE DIHYDROCHLORIDE [Suspect]
     Indication: PARKINSONISM
  3. AMANTADINE HCL [Concomitant]
     Indication: MULTIPLE SYSTEM ATROPHY
     Dosage: 150MG
  4. AMANTADINE HCL [Concomitant]
     Indication: PARKINSONISM
  5. CARBIDOPA AND LEVODOPA [Concomitant]
     Indication: MULTIPLE SYSTEM ATROPHY
     Dosage: 500MG
  6. CARBIDOPA AND LEVODOPA [Concomitant]
     Indication: PARKINSONISM
  7. SELEGILINE HCL [Concomitant]
     Indication: MULTIPLE SYSTEM ATROPHY
     Dosage: 2.5MG
  8. SELEGILINE HCL [Concomitant]
     Indication: PARKINSONISM
  9. CABERGOLINE [Concomitant]
     Indication: MULTIPLE SYSTEM ATROPHY
     Dosage: 3MG
  10. CABERGOLINE [Concomitant]
     Indication: PARKINSONISM
  11. TRIHEXYPHENIDYL [Concomitant]
     Indication: MULTIPLE SYSTEM ATROPHY
     Dosage: 4MG
  12. TRIHEXYPHENIDYL [Concomitant]
     Indication: PARKINSONISM

REACTIONS (2)
  - DYSKINESIA [None]
  - INAPPROPRIATE ANTIDIURETIC HORMONE SECRETION [None]
